FAERS Safety Report 21962641 (Version 1)
Quarter: 2023Q1

REPORT INFORMATION
  Report Type: Spontaneous
  Country: US (occurrence: None)
  Receive Date: 20230204
  Receipt Date: 20230204
  Transmission Date: 20230417
  Serious: Yes (Other)
  Sender: FDA-Public Use
  Company Number: None

PATIENT
  Age: 55 Year
  Sex: Female
  Weight: 72 kg

DRUGS (1)
  1. EASY CARE FIRST AID AFTERBURN [Suspect]
     Active Substance: BENZALKONIUM CHLORIDE\LIDOCAINE HYDROCHLORIDE
     Indication: Thermal burn
     Dosage: FREQUENCY : 3 TIMES A DAY;?
     Route: 061

REACTIONS (2)
  - Skin infection [None]
  - Recalled product administered [None]

NARRATIVE: CASE EVENT DATE: 20221224
